FAERS Safety Report 9457597 (Version 6)
Quarter: 2025Q2

REPORT INFORMATION
  Report Type: Spontaneous
  Country: US (occurrence: US)
  Receive Date: 20130814
  Receipt Date: 20250508
  Transmission Date: 20250717
  Serious: Yes (Other)
  Sender: JOHNSON AND JOHNSON
  Company Number: US-JNJFOC-20130313341

PATIENT
  Age: 4 Decade
  Sex: Male

DRUGS (2)
  1. RISPERDAL [Suspect]
     Active Substance: RISPERIDONE
     Indication: Schizophrenia
     Route: 048
  2. ZYPREXA [Concomitant]
     Active Substance: OLANZAPINE
     Indication: Schizophrenia
     Route: 065

REACTIONS (9)
  - Sympathectomy [Unknown]
  - Gynaecomastia [Unknown]
  - Seizure [Unknown]
  - Tardive dyskinesia [Unknown]
  - Nervous system disorder [Unknown]
  - Nephrolithiasis [Recovering/Resolving]
  - Blood testosterone decreased [Unknown]
  - Weight increased [Unknown]
  - Emotional distress [Unknown]

NARRATIVE: CASE EVENT DATE: 20060101
